FAERS Safety Report 24720035 (Version 1)
Quarter: 2024Q4

REPORT INFORMATION
  Report Type: Spontaneous
  Country: US (occurrence: US)
  Receive Date: 20241211
  Receipt Date: 20241211
  Transmission Date: 20250114
  Serious: No
  Sender: AEGERION
  Company Number: US-AMRYT PHARMACEUTICALS DAC-AEGR007459

PATIENT
  Sex: Male
  Weight: 97.415 kg

DRUGS (4)
  1. MYCAPSSA [Suspect]
     Active Substance: OCTREOTIDE
     Indication: Acromegaly
     Dosage: 20 MILLIGRAM, QD
     Route: 048
     Dates: start: 202401
  2. MYCAPSSA [Suspect]
     Active Substance: OCTREOTIDE
     Indication: Gigantism
  3. PEGVISOMANT [Suspect]
     Active Substance: PEGVISOMANT
     Indication: Acromegaly
     Dosage: 20 MILLIGRAM
     Route: 058
  4. PEGVISOMANT [Suspect]
     Active Substance: PEGVISOMANT
     Indication: Gigantism

REACTIONS (21)
  - Joint swelling [Unknown]
  - Contusion [Unknown]
  - Exercise tolerance decreased [Unknown]
  - Dyspnoea [Unknown]
  - Pollakiuria [Unknown]
  - Micturition urgency [Unknown]
  - Joint range of motion decreased [Unknown]
  - Muscle spasms [Unknown]
  - Muscular weakness [Unknown]
  - Temperature intolerance [Unknown]
  - Scrotal abscess [Recovered/Resolved]
  - Abscess limb [Recovered/Resolved]
  - Memory impairment [Unknown]
  - Osteoporosis [Unknown]
  - Hyperhidrosis [Unknown]
  - Fatigue [Unknown]
  - Back pain [Unknown]
  - Arthralgia [Unknown]
  - Heart rate irregular [Unknown]
  - Dyspepsia [Unknown]
  - Gastrointestinal disorder [Unknown]
